FAERS Safety Report 9283317 (Version 1)
Quarter: 2013Q2

REPORT INFORMATION
  Report Type: Spontaneous
  Country: PK (occurrence: None)
  Receive Date: 20130503
  Receipt Date: 20130503
  Transmission Date: 20140414
  Serious: Yes (Other)
  Sender: FDA-Public Use
  Company Number: KAD201304-000493

PATIENT
  Sex: Female

DRUGS (2)
  1. INTERFERON ALFACON-1 [Suspect]
     Indication: CHRONIC HEPATITIS C
  2. RIBAVIRIN (RIBAVIRIN) [Suspect]
     Indication: CHRONIC HEPATITIS C

REACTIONS (3)
  - Retinal vein thrombosis [None]
  - Arteriosclerosis [None]
  - Dyslipidaemia [None]
